FAERS Safety Report 8306171-9 (Version None)
Quarter: 2012Q2

REPORT INFORMATION
  Report Type: 
  Country: None (occurrence: None)
  Receive Date: 20120423
  Receipt Date: 20120418
  Transmission Date: 20120825
  Serious: Yes (Other)
  Sender: FDA-Public Use
  Company Number: US-PFIZER INC-2012097124

PATIENT
  Sex: Female
  Weight: 81.633 kg

DRUGS (5)
  1. LYRICA [Suspect]
     Indication: FIBROMYALGIA
  2. ZOLPIDEM [Concomitant]
     Indication: SLEEP DISORDER
     Dosage: 10 MG, 1X/DAY
  3. LYRICA [Suspect]
     Indication: SCIATIC NERVE INJURY
     Dosage: 100 MG, 4X/DAY
     Route: 048
  4. ZIAC [Concomitant]
     Indication: HYPERTENSION
     Dosage: 2.5 MG, 1X/DAY
  5. NEXIUM [Concomitant]
     Indication: ABDOMINAL PAIN UPPER
     Dosage: 40 MG, 1X/DAY

REACTIONS (1)
  - BREAST CANCER FEMALE [None]
